FAERS Safety Report 7741355-X (Version None)
Quarter: 2011Q3

REPORT INFORMATION
  Report Type: 
  Country: None (occurrence: None)
  Receive Date: 20110909
  Receipt Date: 20110902
  Transmission Date: 20111222
  Serious: No
  Sender: FDA-Public Use
  Company Number: US-PFIZER INC-2011208049

PATIENT
  Sex: Female

DRUGS (1)
  1. SUTENT [Suspect]
     Dosage: 37.5 MG, 1X/DAY, 4 WEEKS ON/ 2 WEEKS OFF
     Route: 048

REACTIONS (5)
  - CONSTIPATION [None]
  - JOINT SWELLING [None]
  - HYPOAESTHESIA [None]
  - DIARRHOEA [None]
  - FATIGUE [None]
